FAERS Safety Report 5669996-4 (Version None)
Quarter: 2008Q1

REPORT INFORMATION
  Report Type: 
  Country: None (occurrence: None)
  Receive Date: 20080317
  Receipt Date: 20080313
  Transmission Date: 20080703
  Serious: Yes (Hospitalization)
  Sender: FDA-Public Use
  Company Number: JP-BOEHRINGER INGELHEIM GMBH, GERMANY-2007-BP-26763NB

PATIENT
  Sex: Male
  Weight: 46.3 kg

DRUGS (12)
  1. SPIRIVA [Suspect]
     Indication: EMPHYSEMA
     Route: 055
     Dates: start: 20070411, end: 20070510
  2. NORVASC [Concomitant]
     Indication: HYPERTENSION
     Route: 048
  3. LANIRAPID [Concomitant]
     Indication: ATRIAL FIBRILLATION
     Route: 048
  4. ASPIRIN [Concomitant]
     Indication: CEREBRAL INFARCTION
     Route: 048
  5. ASPIRIN [Concomitant]
     Indication: ATRIAL FIBRILLATION
  6. LASIX [Concomitant]
     Indication: RENAL FAILURE CHRONIC
     Route: 048
     Dates: start: 20070206
  7. PROTECADIN [Concomitant]
     Indication: GASTRIC ULCER
     Route: 048
     Dates: start: 20040130
  8. JUSO [Concomitant]
     Indication: METABOLIC ACIDOSIS
     Route: 048
     Dates: start: 20060324
  9. JUSO [Concomitant]
     Indication: RENAL FAILURE CHRONIC
  10. FERROMIA [Concomitant]
     Indication: IRON DEFICIENCY ANAEMIA
     Route: 048
     Dates: start: 20070306
  11. ARGAMATE [Concomitant]
     Indication: HYPERKALAEMIA
     Route: 048
     Dates: start: 20061107
  12. VASOLAN [Concomitant]
     Indication: ATRIAL FIBRILLATION
     Route: 048
     Dates: start: 20051028, end: 20070510

REACTIONS (1)
  - CARDIAC FAILURE [None]
